FAERS Safety Report 19020781 (Version 1)
Quarter: 2021Q1

REPORT INFORMATION
  Report Type: Report from Study
  Country: GB (occurrence: GB)
  Receive Date: 20210317
  Receipt Date: 20210317
  Transmission Date: 20210420
  Serious: Yes (Hospitalization)
  Sender: FDA-Public Use
  Company Number: GB-BAYER-2021-102361

PATIENT
  Age: 32 Year
  Sex: Male

DRUGS (6)
  1. RED BLOOD CELLS [Concomitant]
     Active Substance: HUMAN RED BLOOD CELL
     Indication: TRANSFUSION
     Dosage: 600 MILILITRE TOTAL INTRA AND POST OPERATIVELY
     Route: 065
     Dates: start: 20200706
  2. HEPARIN [Concomitant]
     Active Substance: HEPARIN SODIUM
     Indication: ANTICOAGULANT THERAPY
     Dosage: 50 KILO INTERANTIONAL UNIT TOTAL DURING SURGERY
     Route: 065
     Dates: start: 20200706, end: 20200706
  3. PLATELETS [Concomitant]
     Active Substance: HUMAN PLATELET, ALLOGENIC
     Indication: TRANSFUSION
     Dosage: 245 MILILITRE TOTAL INTRA AND POST OPERATIVELY
     Route: 065
     Dates: start: 20200706
  4. CLOPIDOGREL [Concomitant]
     Active Substance: CLOPIDOGREL BISULFATE
     Indication: ANTIPLATELET THERAPY
     Dosage: UNK
     Route: 065
  5. WARFARIN [Concomitant]
     Active Substance: WARFARIN
     Indication: ANTICOAGULANT THERAPY
     Dosage: UNK
     Route: 065
     Dates: start: 20200706, end: 20200706
  6. APROTININ [Suspect]
     Active Substance: APROTININ
     Indication: MITRAL VALVE REPLACEMENT
     Dosage: 600 MILILITRE TOTAL LOADING DOSE
     Route: 065
     Dates: start: 20200706, end: 20200706

REACTIONS (3)
  - Renal impairment [Recovered/Resolved with Sequelae]
  - Product use in unapproved indication [Unknown]
  - Off label use [Unknown]

NARRATIVE: CASE EVENT DATE: 20200706
